FAERS Safety Report 9524101 (Version 1)
Quarter: 2013Q3

REPORT INFORMATION
  Report Type: Spontaneous
  Country: FR (occurrence: FR)
  Receive Date: 20130916
  Receipt Date: 20130916
  Transmission Date: 20140515
  Serious: Yes (Hospitalization, Other)
  Sender: FDA-Public Use
  Company Number: FR-JNJFOC-20130907595

PATIENT
  Age: 57 Year
  Sex: Female

DRUGS (7)
  1. XARELTO [Suspect]
     Indication: THROMBOSIS PROPHYLAXIS
     Route: 048
     Dates: start: 20121018, end: 20130620
  2. XARELTO [Suspect]
     Indication: PULMONARY EMBOLISM
     Route: 048
     Dates: start: 20121018, end: 20130620
  3. RISPERDAL CONSTA [Concomitant]
     Route: 030
  4. ALPRAZOLAM [Concomitant]
     Route: 065
  5. SEROPLEX [Concomitant]
     Route: 065
  6. BACLOFEN [Concomitant]
     Route: 065
  7. NORSET [Concomitant]
     Route: 065

REACTIONS (1)
  - Thrombocytopenic purpura [Recovering/Resolving]
